FAERS Safety Report 23750811 (Version 1)
Quarter: 2024Q2

REPORT INFORMATION
  Report Type: 
  Country: JP (occurrence: JP)
  Receive Date: 20240417
  Receipt Date: 20240417
  Transmission Date: 20240716
  Serious: Yes (Death)
  Sender: FDA-Public Use
  Company Number: JP-JNJFOC-20240449650

PATIENT
  Age: 82 Year
  Sex: Female
  Weight: 63.7 kg

DRUGS (9)
  1. SIMPONI [Suspect]
     Active Substance: GOLIMUMAB
     Indication: Rheumatoid arthritis
     Dosage: DOSE UNKNOWN
     Route: 058
     Dates: start: 201409, end: 20230706
  2. RHEUMATREX [Suspect]
     Active Substance: METHOTREXATE SODIUM
     Indication: Rheumatoid arthritis
     Dosage: 4MG TWICE A DAY, AFTER BREAKFAST AND DINNER, FRIDAY
     Route: 048
     Dates: start: 201409, end: 20231023
  3. ELDECALCITOL [Concomitant]
     Active Substance: ELDECALCITOL
     Dosage: AFTER BREAKFAST
     Route: 065
  4. ZOLPIDEM TARTRATE [Concomitant]
     Active Substance: ZOLPIDEM TARTRATE
     Route: 065
  5. CALONAL [Concomitant]
     Active Substance: ACETAMINOPHEN
     Route: 065
  6. MAGNESIUM OXIDE [Concomitant]
     Active Substance: MAGNESIUM OXIDE
     Route: 065
  7. FEXOFENADINE HYDROCHLORIDE [Concomitant]
     Active Substance: FEXOFENADINE HYDROCHLORIDE
     Route: 065
  8. FOLIC ACID [Concomitant]
     Active Substance: FOLIC ACID
     Dosage: AFTER BREAKFAST, SUNDAY
     Route: 065
     Dates: start: 201409, end: 20231023
  9. BUCILLAMINE [Concomitant]
     Active Substance: BUCILLAMINE
     Indication: Rheumatoid arthritis
     Route: 048
     Dates: start: 201409

REACTIONS (1)
  - Lymphoproliferative disorder [Fatal]

NARRATIVE: CASE EVENT DATE: 20231023
